FAERS Safety Report 9477923 (Version 1)
Quarter: 2013Q3

REPORT INFORMATION
  Report Type: Spontaneous
  Country: US (occurrence: US)
  Receive Date: 20130827
  Receipt Date: 20130827
  Transmission Date: 20140515
  Serious: Yes (Other)
  Sender: FDA-Public Use
  Company Number: US-JNJFOC-20130810299

PATIENT
  Age: 52 Year
  Sex: Male
  Weight: 82.1 kg

DRUGS (4)
  1. XARELTO [Suspect]
     Indication: THROMBOSIS
     Route: 048
     Dates: start: 201307, end: 20130817
  2. METOPROLOL [Concomitant]
     Indication: BLOOD PRESSURE
     Route: 065
  3. PLAVIX [Concomitant]
     Indication: MYOCARDIAL INFARCTION
     Route: 065
  4. ASPIRIN [Concomitant]
     Route: 065

REACTIONS (3)
  - Weight decreased [Recovering/Resolving]
  - Drug prescribing error [Recovered/Resolved]
  - Incorrect dose administered [Recovered/Resolved]
